FAERS Safety Report 9305479 (Version 1)
Quarter: 2013Q2

REPORT INFORMATION
  Report Type: Spontaneous
  Country: US (occurrence: US)
  Receive Date: 20130523
  Receipt Date: 20130523
  Transmission Date: 20140414
  Serious: Yes (Hospitalization)
  Sender: FDA-Public Use
  Company Number: US-NOVOPROD-378137

PATIENT
  Age: 67 Year
  Sex: Male
  Weight: 122.45 kg

DRUGS (2)
  1. NOVOLOG MIX 70/30 [Suspect]
     Indication: TYPE 2 DIABETES MELLITUS
     Dosage: 30 U QD
     Route: 058
     Dates: start: 201201
  2. NOVOLOG MIX 70/30 [Suspect]
     Dosage: 50 U SINGLE
     Dates: start: 20130510, end: 20130510

REACTIONS (4)
  - Dyspnoea [Recovered/Resolved]
  - Accidental overdose [Recovered/Resolved]
  - Blood glucose decreased [Recovered/Resolved]
  - Blood glucose increased [Recovered/Resolved]
